FAERS Safety Report 24696458 (Version 1)
Quarter: 2024Q4

REPORT INFORMATION
  Report Type: Spontaneous
  Country: US (occurrence: US)
  Receive Date: 20241204
  Receipt Date: 20241204
  Transmission Date: 20250115
  Serious: Yes (Hospitalization, Other)
  Sender: VELOXIS PHARMACEUTICALS
  Company Number: US-MLMSERVICE-20181211-1528021-1

PATIENT
  Age: 62 Year
  Sex: Male

DRUGS (4)
  1. TACROLIMUS [Suspect]
     Active Substance: TACROLIMUS
     Indication: Lung transplant
     Dosage: UNK
     Route: 065
  2. MYCOPHENOLATE MOFETIL [Suspect]
     Active Substance: MYCOPHENOLATE MOFETIL
     Indication: Lung transplant
     Dosage: UNK
  3. PREDNISONE [Suspect]
     Active Substance: PREDNISONE
     Indication: Lung transplant
     Dosage: 5 MG, UNK
  4. RITUXIMAB [Concomitant]
     Active Substance: RITUXIMAB
     Indication: Lung transplant
     Dosage: UNK, ONCE WEEKLY

REACTIONS (4)
  - Transplant rejection [Unknown]
  - Post transplant lymphoproliferative disorder [Recovered/Resolved]
  - Influenza [Recovered/Resolved]
  - Intentional product use issue [Unknown]
